FAERS Safety Report 17218047 (Version 1)
Quarter: 2019Q4

REPORT INFORMATION
  Report Type: Spontaneous
  Country: FR (occurrence: FR)
  Receive Date: 20191231
  Receipt Date: 20191231
  Transmission Date: 20200122
  Serious: Yes (Other)
  Sender: FDA-Public Use
  Company Number: FR-CELLTRION INC.-2019FR027779

PATIENT

DRUGS (1)
  1. INFLECTRA [Suspect]
     Active Substance: INFLIXIMAB-DYYB
     Indication: PSORIATIC ARTHROPATHY
     Dosage: UNK
     Route: 042
     Dates: start: 201909

REACTIONS (8)
  - Feeling hot [Unknown]
  - Malaise [Unknown]
  - Gingival bleeding [Unknown]
  - Syncope [Unknown]
  - Chills [Unknown]
  - Blood pressure fluctuation [Unknown]
  - Back pain [Unknown]
  - Paraesthesia [Unknown]
